FAERS Safety Report 8465416-5 (Version None)
Quarter: 2012Q2

REPORT INFORMATION
  Report Type: 
  Country: None (occurrence: None)
  Receive Date: 20120626
  Receipt Date: 20120618
  Transmission Date: 20120825
  Serious: Yes (Hospitalization)
  Sender: FDA-Public Use
  Company Number: US-BAYER-2012-062042

PATIENT
  Age: 46 Year
  Sex: Female
  Weight: 63 kg

DRUGS (5)
  1. PROVENTIL [Concomitant]
     Indication: WHEEZING
     Dosage: 90 MCG, 1 TO 2 PUFFS EVERY 4 TO 6 HOURS AS NEEDED
     Dates: start: 19990408, end: 20110519
  2. FIORICET [Concomitant]
     Indication: HEADACHE
     Dosage: 50-325-40 MG, 1 TO 2 EVERY 4 HOURS AS NEEDED
     Route: 048
     Dates: start: 20040122, end: 20110726
  3. ATIVAN [Concomitant]
     Indication: STRESS
     Dosage: 0.25 MG ONCE OR TWICE DAILY AS NEEDED
  4. DROSPIRENONE AND ETHINYL ESTRADIOL [Suspect]
  5. YASMIN [Suspect]

REACTIONS (1)
  - ACUTE MYOCARDIAL INFARCTION [None]
